FAERS Safety Report 6923032-8 (Version None)
Quarter: 2010Q3

REPORT INFORMATION
  Report Type: 
  Country: None (occurrence: None)
  Receive Date: 20100813
  Receipt Date: 20100809
  Transmission Date: 20110219
  Serious: Yes (Other)
  Sender: FDA-Public Use
  Company Number: CHPA2010US12851

PATIENT
  Age: 68 Year
  Sex: Female
  Weight: 63.492 kg

DRUGS (2)
  1. BENEFIBER W/ WHEAT DEXTRIN (NCH) [Suspect]
     Indication: IRRITABLE BOWEL SYNDROME
     Dosage: 3 TSP, 6 TO 7 TIMES IN A DAY
     Route: 048
     Dates: start: 20100505
  2. BENEFIBER W/ WHEAT DEXTRIN (NCH) [Suspect]
     Dosage: 3 TSP, 6 TO 7 TIMES IN A DAY, ON AND OFF
     Route: 048

REACTIONS (4)
  - DIABETES MELLITUS [None]
  - INCORRECT DOSE ADMINISTERED [None]
  - OFF LABEL USE [None]
  - OVERDOSE [None]
